FAERS Safety Report 24564847 (Version 3)
Quarter: 2024Q4

REPORT INFORMATION
  Report Type: Spontaneous
  Country: US (occurrence: US)
  Receive Date: 20241030
  Receipt Date: 20241120
  Transmission Date: 20250114
  Serious: Yes (Hospitalization)
  Sender: VERTEX
  Company Number: US-VERTEX PHARMACEUTICALS-2024-016871

PATIENT
  Age: 29 Year
  Sex: Female

DRUGS (1)
  1. TRIKAFTA [Suspect]
     Active Substance: ELEXACAFTOR\IVACAFTOR\TEZACAFTOR
     Indication: Cystic fibrosis
     Dosage: UNKNOWN DOSAGE REGIMEN
     Route: 048
     Dates: start: 2019

REACTIONS (8)
  - Brain fog [Recovering/Resolving]
  - Hospitalisation [Unknown]
  - Memory impairment [Recovering/Resolving]
  - Mental disorder [Unknown]
  - General physical health deterioration [Unknown]
  - Infective pulmonary exacerbation of cystic fibrosis [Unknown]
  - Thrombosis [Unknown]
  - Menstrual discomfort [Unknown]
